FAERS Safety Report 4928998-3 (Version None)
Quarter: 2006Q1

REPORT INFORMATION
  Report Type: 
  Country: None (occurrence: None)
  Receive Date: 20060301
  Receipt Date: 20060221
  Transmission Date: 20060701
  Serious: Yes (Other)
  Sender: FDA-Public Use
  Company Number: 2006AP00921

PATIENT
  Age: 80 Year
  Sex: Male

DRUGS (3)
  1. ZOLADEX [Suspect]
     Indication: PROSTATE CANCER
     Route: 058
  2. NU-LOTAN [Concomitant]
     Route: 048
  3. LEUPLIN [Concomitant]

REACTIONS (1)
  - INTERSTITIAL LUNG DISEASE [None]
